FAERS Safety Report 21143195 (Version 1)
Quarter: 2022Q3

REPORT INFORMATION
  Report Type: Spontaneous
  Country: US (occurrence: US)
  Receive Date: 20220728
  Receipt Date: 20220728
  Transmission Date: 20221027
  Serious: No
  Sender: FDA-Public Use
  Company Number: US-INSUD PHARMA-2207US02953

PATIENT

DRUGS (2)
  1. SLYND [Suspect]
     Active Substance: DROSPIRENONE
     Indication: Product used for unknown indication
     Dosage: 1 PILL DAILY
     Route: 048
     Dates: start: 202207
  2. SLYND [Suspect]
     Active Substance: DROSPIRENONE
     Dosage: DOUBLED UP AND TOOK 2 PILLS A DAY FOR 4 DAYS
     Dates: start: 202207

REACTIONS (2)
  - Intermenstrual bleeding [Not Recovered/Not Resolved]
  - Inappropriate schedule of product administration [Unknown]

NARRATIVE: CASE EVENT DATE: 20220701
